FAERS Safety Report 25646307 (Version 2)
Quarter: 2025Q3

REPORT INFORMATION
  Report Type: Report from Study
  Country: US (occurrence: US)
  Receive Date: 20250805
  Receipt Date: 20250813
  Transmission Date: 20251021
  Serious: Yes (Other)
  Sender: MALLINCKRODT
  Company Number: US-MALLINCKRODT-MNK202504760

PATIENT
  Age: 45 Year
  Sex: Female

DRUGS (3)
  1. CORTICOTROPIN [Suspect]
     Active Substance: CORTICOTROPIN
     Indication: Systemic lupus erythematosus
     Route: 058
     Dates: start: 20240119
  2. ASPIRIN [Suspect]
     Active Substance: ASPIRIN
     Indication: Product used for unknown indication
  3. BENLYSTA [Concomitant]
     Active Substance: BELIMUMAB

REACTIONS (14)
  - Bowel obstruction surgery [Recovering/Resolving]
  - Intestinal resection [Unknown]
  - Appendicectomy [Unknown]
  - Scar excision [Unknown]
  - Heart rate increased [Unknown]
  - Brain injury [Unknown]
  - Cerebrovascular accident [Unknown]
  - Leukaemia [Unknown]
  - White blood cell count increased [Unknown]
  - Pain in extremity [Recovering/Resolving]
  - Panic attack [Unknown]
  - Hypertension [Unknown]
  - Drug hypersensitivity [Unknown]
  - Contraindicated product administered [Unknown]

NARRATIVE: CASE EVENT DATE: 20250101
